FAERS Safety Report 8779798 (Version 2)
Quarter: 2012Q4

REPORT INFORMATION
  Report Type: 
  Country: US (occurrence: US)
  Receive Date: 20120913
  Receipt Date: 20121010
  Transmission Date: 20130627
  Serious: Yes (Death, Hospitalization)
  Sender: FDA-Public Use
  Company Number: CHPA2012US019391

PATIENT
  Age: 55 Year
  Sex: Male

DRUGS (2)
  1. EXCEDRIN EXTRA STRENGTH [Suspect]
     Indication: CANCER PAIN
     Dosage: UNK, UNK
     Route: 048
     Dates: end: 201104
  2. EXCEDRIN EXTRA STRENGTH [Suspect]
     Dosage: 1 DF, UNK
     Route: 048
     Dates: start: 201104, end: 201104

REACTIONS (9)
  - Puncture site haemorrhage [Fatal]
  - Traumatic lung injury [Fatal]
  - Lung neoplasm [Unknown]
  - Hepatic neoplasm [Unknown]
  - Cancer pain [Unknown]
  - Disease recurrence [Unknown]
  - Mental impairment [Unknown]
  - Feeling abnormal [Unknown]
  - Underdose [Unknown]
